FAERS Safety Report 25182459 (Version 1)
Quarter: 2025Q2

REPORT INFORMATION
  Report Type: Spontaneous
  Country: US (occurrence: US)
  Receive Date: 20250410
  Receipt Date: 20250410
  Transmission Date: 20250716
  Serious: No
  Sender: KINIKSA PHARMACEUTICALS
  Company Number: US-Kiniksa Pharmaceuticals Ltd.-2025KPU000373

PATIENT
  Age: 31 Year
  Sex: Male

DRUGS (1)
  1. ARCALYST [Suspect]
     Active Substance: RILONACEPT
     Indication: Product used for unknown indication
     Dates: start: 202410

REACTIONS (4)
  - Panic attack [Unknown]
  - Tension [Unknown]
  - Tremor [Unknown]
  - Fear of injection [Unknown]

NARRATIVE: CASE EVENT DATE: 20241001
